FAERS Safety Report 21308942 (Version 1)
Quarter: 2022Q3

REPORT INFORMATION
  Report Type: Spontaneous
  Country: US (occurrence: US)
  Receive Date: 20220908
  Receipt Date: 20220908
  Transmission Date: 20221027
  Serious: Yes (Other)
  Sender: FDA-Public Use
  Company Number: US-HALEON-USCH2022GSK032130

PATIENT
  Age: 64 Year
  Sex: Male

DRUGS (1)
  1. TUMS [Suspect]
     Active Substance: CALCIUM CARBONATE
     Indication: Gastrooesophageal reflux disease
     Dosage: UNK

REACTIONS (12)
  - Milk-alkali syndrome [Unknown]
  - Renal failure [Unknown]
  - Atrial fibrillation [Unknown]
  - Encephalopathy [Recovering/Resolving]
  - Confusional state [Unknown]
  - Ataxia [Unknown]
  - Dysarthria [Unknown]
  - Hypercalcaemia [Recovering/Resolving]
  - Metabolic alkalosis [Unknown]
  - Haemodynamic instability [Unknown]
  - Prostatomegaly [Unknown]
  - Extra dose administered [Unknown]
